FAERS Safety Report 9851941 (Version 1)
Quarter: 2014Q1

REPORT INFORMATION
  Report Type: Spontaneous
  Country: IT (occurrence: IT)
  Receive Date: 20140129
  Receipt Date: 20140129
  Transmission Date: 20141002
  Serious: Yes (Death, Other)
  Sender: FDA-Public Use
  Company Number: IT-JNJFOC-20140115575

PATIENT
  Age: 74 Year
  Sex: Male
  Weight: 70 kg

DRUGS (1)
  1. ABCIXIMAB [Suspect]
     Indication: THROMBOSIS
     Route: 042
     Dates: start: 20140112, end: 20140112

REACTIONS (3)
  - Diarrhoea haemorrhagic [Fatal]
  - Acute pulmonary oedema [Unknown]
  - Bradycardia [Unknown]
